FAERS Safety Report 5094203-3 (Version None)
Quarter: 2006Q3

REPORT INFORMATION
  Report Type: 
  Country: None (occurrence: None)
  Receive Date: 20060831
  Receipt Date: 20060808
  Transmission Date: 20061208
  Serious: Yes (Disabling, Other)
  Sender: FDA-Public Use
  Company Number: PHNR2006AU01025

PATIENT
  Age: 76 Year
  Sex: Male

DRUGS (3)
  1. DOCETAXEL [Concomitant]
     Route: 065
  2. ZOMETA [Suspect]
     Indication: PROSTATE CANCER METASTATIC
     Dosage: 4MG, 3 MONTHLY
     Route: 065
  3. ZOMETA [Suspect]
     Dosage: 4MG, 3-4 WEEKLY
     Route: 065
     Dates: start: 20050801

REACTIONS (3)
  - OSTEONECROSIS [None]
  - TOOTH ABSCESS [None]
  - TOOTH EXTRACTION [None]
